FAERS Safety Report 6077000-1 (Version None)
Quarter: 2009Q1

REPORT INFORMATION
  Report Type: 
  Country: None (occurrence: None)
  Receive Date: 20090211
  Receipt Date: 20090211
  Transmission Date: 20090719
  Serious: Yes (Hospitalization)
  Sender: FDA-Public Use
  Company Number: None

PATIENT
  Sex: Female
  Weight: 69.8 kg

DRUGS (4)
  1. CISPLATIN [Suspect]
     Dosage: 105 MG
  2. ETOPOSIDE [Suspect]
     Dosage: 630 MG
  3. G-CSF (FILGRASTIM, AMGEN) [Suspect]
     Dosage: 3.8 MG
  4. NEULASTA [Suspect]
     Dosage: 6 MG

REACTIONS (6)
  - ANAEMIA [None]
  - PULMONARY CALCIFICATION [None]
  - RENAL FAILURE ACUTE [None]
  - RENAL TUBULAR NECROSIS [None]
  - THROMBOCYTOPENIA [None]
  - UPPER RESPIRATORY TRACT INFECTION [None]
